FAERS Safety Report 17999555 (Version 3)
Quarter: 2020Q3

REPORT INFORMATION
  Report Type: Report from Study
  Country: US (occurrence: US)
  Receive Date: 20200709
  Receipt Date: 20200824
  Transmission Date: 20201103
  Serious: Yes (Hospitalization, Other)
  Sender: FDA-Public Use
  Company Number: US-ACTELION-A-US2018-171943

PATIENT
  Age: 73 Year
  Sex: Female

DRUGS (2)
  1. TADALAFIL. [Concomitant]
     Active Substance: TADALAFIL
  2. OPSUMIT [Suspect]
     Active Substance: MACITENTAN
     Indication: PULMONARY ARTERIAL HYPERTENSION
     Dosage: 10 MG, QD
     Route: 048
     Dates: start: 20170413

REACTIONS (18)
  - Muscular weakness [Unknown]
  - Rash [Unknown]
  - Endarterectomy [Unknown]
  - Cardiac flutter [Unknown]
  - Sinus congestion [Unknown]
  - Cellulitis [Unknown]
  - Dizziness [Unknown]
  - Cardiac pacemaker insertion [Unknown]
  - Pruritus [Unknown]
  - Heart valve replacement [Unknown]
  - Catheterisation cardiac [Unknown]
  - Drug hypersensitivity [Unknown]
  - Cough [Unknown]
  - Loss of consciousness [Unknown]
  - Oedema peripheral [Unknown]
  - Dysphonia [Not Recovered/Not Resolved]
  - Sinusitis [Recovered/Resolved]
  - Muscle injury [Unknown]

NARRATIVE: CASE EVENT DATE: 20170503
